FAERS Safety Report 11255381 (Version 4)
Quarter: 2015Q3

REPORT INFORMATION
  Report Type: Spontaneous
  Country: JP (occurrence: JP)
  Receive Date: 20150709
  Receipt Date: 20150914
  Transmission Date: 20151125
  Serious: Yes (Hospitalization, Other)
  Sender: FDA-Public Use
  Company Number: JP-GLAXOSMITHKLINE-JP2015JPN084112

PATIENT
  Sex: Male

DRUGS (1)
  1. VOTRIENT [Suspect]
     Active Substance: PAZOPANIB HYDROCHLORIDE
     Indication: SOFT TISSUE SARCOMA
     Dosage: UNK
     Route: 048
     Dates: start: 20150603

REACTIONS (6)
  - Vocal cord disorder [Unknown]
  - Soft tissue sarcoma [Unknown]
  - Fatigue [Unknown]
  - Pneumonia aspiration [Unknown]
  - Aspiration [Unknown]
  - Feeding disorder [Unknown]

NARRATIVE: CASE EVENT DATE: 201506
